FAERS Safety Report 11269119 (Version 2)
Quarter: 2015Q3

REPORT INFORMATION
  Report Type: Spontaneous
  Country: US (occurrence: None)
  Receive Date: 20150710
  Receipt Date: 20150903
  Transmission Date: 20151125
  Serious: Yes (Other)
  Sender: FDA-Public Use
  Company Number: US2015083858

PATIENT
  Age: 69 Year
  Sex: Female

DRUGS (1)
  1. SENSODYNE PRONAMEL [Suspect]
     Active Substance: POTASSIUM NITRATE\SODIUM FLUORIDE
     Indication: PRODUCT USED FOR UNKNOWN INDICATION
     Route: 004
     Dates: start: 20150613, end: 20150614

REACTIONS (4)
  - Bronchospasm [None]
  - Respiratory tract oedema [None]
  - Hypersensitivity [None]
  - Erythema [None]

NARRATIVE: CASE EVENT DATE: 20150613
